FAERS Safety Report 9188728 (Version 1)
Quarter: 2013Q1

REPORT INFORMATION
  Report Type: Spontaneous
  Country: SI (occurrence: SI)
  Receive Date: 20130325
  Receipt Date: 20130325
  Transmission Date: 20140127
  Serious: Yes (Death, Other)
  Sender: FDA-Public Use
  Company Number: SI-CELGENEUS-261-50794-13032092

PATIENT
  Sex: 0

DRUGS (1)
  1. VIDAZA [Suspect]
     Indication: PRODUCT USED FOR UNKNOWN INDICATION
     Dosage: 75 MILLIGRAM/SQ. METER
     Route: 058
     Dates: start: 200907, end: 201212

REACTIONS (5)
  - Death [Fatal]
  - Infection [Unknown]
  - Acute myeloid leukaemia [Unknown]
  - Pancytopenia [Unknown]
  - Treatment failure [Unknown]
